FAERS Safety Report 14230201 (Version 1)
Quarter: 2017Q4

REPORT INFORMATION
  Report Type: Spontaneous
  Country: JP (occurrence: JP)
  Receive Date: 20171128
  Receipt Date: 20171128
  Transmission Date: 20180321
  Serious: Yes (Death, Hospitalization)
  Sender: FDA-Public Use
  Company Number: JP-JNJFOC-20171130917

PATIENT
  Age: 47 Year
  Sex: Female
  Weight: 38 kg

DRUGS (11)
  1. IMURAN [Suspect]
     Active Substance: AZATHIOPRINE
     Indication: CROHN^S DISEASE
     Route: 048
     Dates: start: 20160218, end: 20160421
  2. ASACOL [Concomitant]
     Active Substance: MESALAMINE
     Route: 048
  3. PROTECADIN [Concomitant]
     Active Substance: LAFUTIDINE
     Route: 048
  4. TOSUFLOXACIN TOSILATE [Concomitant]
     Active Substance: TOSUFLOXACIN TOSYLATE
     Route: 048
  5. SAIREITO [Concomitant]
     Active Substance: HERBALS
     Route: 048
  6. BAREON [Concomitant]
     Route: 048
  7. HUMIRA [Suspect]
     Active Substance: ADALIMUMAB
     Indication: CROHN^S DISEASE
     Route: 058
     Dates: start: 20161006, end: 20170818
  8. MIYA-BM [Concomitant]
     Active Substance: CLOSTRIDIUM BUTYRICUM SPORES STRAIN M-55
     Route: 048
  9. REMICADE [Suspect]
     Active Substance: INFLIXIMAB
     Indication: CROHN^S DISEASE
     Route: 042
     Dates: start: 20160818, end: 20160818
  10. REMICADE [Suspect]
     Active Substance: INFLIXIMAB
     Indication: CROHN^S DISEASE
     Route: 042
     Dates: start: 20140929
  11. CALONAL [Concomitant]
     Active Substance: ACETAMINOPHEN
     Route: 048

REACTIONS (3)
  - Arthralgia [Unknown]
  - Disseminated tuberculosis [Fatal]
  - Crohn^s disease [Unknown]

NARRATIVE: CASE EVENT DATE: 2016
